FAERS Safety Report 13938111 (Version 1)
Quarter: 2017Q3

REPORT INFORMATION
  Report Type: Report from Study
  Country: NL (occurrence: NL)
  Receive Date: 20170905
  Receipt Date: 20170905
  Transmission Date: 20171127
  Serious: Yes (Death)
  Sender: FDA-Public Use
  Company Number: NL-ACTELION-A-US2017-159023

PATIENT
  Age: 79 Year
  Sex: Female

DRUGS (4)
  1. VENTAVIS [Suspect]
     Active Substance: ILOPROST
     Dosage: 0.25 ML, 6ID
     Route: 055
     Dates: start: 2017
  2. VENTAVIS [Suspect]
     Active Substance: ILOPROST
     Dosage: 0.25 ML, 6ID
     Route: 055
     Dates: start: 2017
  3. VENTAVIS [Suspect]
     Active Substance: ILOPROST
     Indication: PULMONARY ARTERIAL HYPERTENSION
     Dosage: 0.25 ML, 6ID
     Route: 055
     Dates: start: 20150130, end: 20170811
  4. OPSUMIT [Concomitant]
     Active Substance: MACITENTAN
     Route: 048

REACTIONS (1)
  - Death [Fatal]

NARRATIVE: CASE EVENT DATE: 20170825
